FAERS Safety Report 9331421 (Version 1)
Quarter: 2013Q2

REPORT INFORMATION
  Report Type: Report from Study
  Country: US (occurrence: US)
  Receive Date: 20130605
  Receipt Date: 20130605
  Transmission Date: 20140414
  Serious: Yes (Hospitalization)
  Sender: FDA-Public Use
  Company Number: US-ABBOTT-13P-163-1097174-00

PATIENT
  Sex: Female

DRUGS (5)
  1. HUMIRA [Suspect]
     Indication: ANKYLOSING SPONDYLITIS
     Dates: end: 201211
  2. HUMIRA [Suspect]
     Dates: start: 201302
  3. OMEPRAZOLE [Concomitant]
     Indication: GASTROOESOPHAGEAL REFLUX DISEASE
  4. PHENTERMINE [Concomitant]
     Indication: WEIGHT DECREASED
  5. PERCOCET [Concomitant]
     Indication: PAIN

REACTIONS (4)
  - Gallbladder disorder [Unknown]
  - Dyspnoea [Unknown]
  - Hyperhidrosis [Unknown]
  - Abdominal pain [Unknown]
